FAERS Safety Report 9712788 (Version 3)
Quarter: 2014Q2

REPORT INFORMATION
  Report Type: Spontaneous
  Country: US (occurrence: US)
  Receive Date: 20131126
  Receipt Date: 20140510
  Transmission Date: 20141212
  Serious: No
  Sender: FDA-Public Use
  Company Number: US-BRISTOL-MYERS SQUIBB COMPANY-19233410

PATIENT
  Age: 42 Year
  Sex: Female
  Weight: 158.73 kg

DRUGS (6)
  1. BYDUREON [Suspect]
     Indication: TYPE 2 DIABETES MELLITUS
     Route: 058
     Dates: start: 20130112, end: 201309
  2. METFORMIN [Concomitant]
  3. SINGULAIR [Concomitant]
  4. ZYRTEC [Concomitant]
  5. LIPITOR [Concomitant]
  6. DYAZIDE [Concomitant]
     Dosage: 1 D.F:3.75/2.2

REACTIONS (4)
  - Injection site nodule [Recovering/Resolving]
  - Injection site reaction [Unknown]
  - Sinusitis [Unknown]
  - Rash [Unknown]
